FAERS Safety Report 7016366-2 (Version None)
Quarter: 2010Q3

REPORT INFORMATION
  Report Type: 
  Country: None (occurrence: None)
  Receive Date: 20100927
  Receipt Date: 20100921
  Transmission Date: 20110219
  Serious: Yes (Hospitalization)
  Sender: FDA-Public Use
  Company Number: DE-ABBOTT-10P-062-0672575-00

PATIENT
  Sex: Male

DRUGS (2)
  1. ERGENYL CHRONO [Suspect]
     Indication: EPILEPSY
  2. PROPOFOL [Interacting]
     Indication: ANAESTHESIA
     Dates: start: 20100101, end: 20100101

REACTIONS (2)
  - CONVULSION [None]
  - DRUG INTERACTION [None]
